FAERS Safety Report 6245959-5 (Version None)
Quarter: 2009Q2

REPORT INFORMATION
  Report Type: 
  Country: None (occurrence: None)
  Receive Date: 20090626
  Receipt Date: 20080825
  Transmission Date: 20091009
  Serious: No
  Sender: FDA-Public Use
  Company Number: A0744465A

PATIENT
  Age: 56 Year
  Sex: Female

DRUGS (3)
  1. IMITREX [Suspect]
     Indication: MIGRAINE
     Route: 048
     Dates: start: 20080201, end: 20080815
  2. AZITHROMYCIN [Concomitant]
  3. ETHAMBUTOL HCL [Concomitant]

REACTIONS (9)
  - FATIGUE [None]
  - GINGIVITIS [None]
  - HYPERHIDROSIS [None]
  - MUSCULOSKELETAL PAIN [None]
  - NAUSEA [None]
  - NECK PAIN [None]
  - PAIN [None]
  - PAIN IN JAW [None]
  - PRURITUS [None]
